FAERS Safety Report 16159224 (Version 1)
Quarter: 2019Q2

REPORT INFORMATION
  Report Type: Spontaneous
  Country: FR (occurrence: FR)
  Receive Date: 20190404
  Receipt Date: 20190404
  Transmission Date: 20190711
  Serious: Yes (Other)
  Sender: FDA-Public Use
  Company Number: FR-TEVA-2019-FR-1032702

PATIENT
  Age: 47 Year
  Sex: Male

DRUGS (4)
  1. TABAC (POUDRE DE) [Suspect]
     Active Substance: TOBACCO LEAF
     Indication: TOBACCO USER
     Dosage: 30G/DAY
     Route: 055
     Dates: start: 1985
  2. TRAMADOL (CHLORHYDRATE DE) [Suspect]
     Active Substance: TRAMADOL HYDROCHLORIDE
     Indication: PRODUCT USED FOR UNKNOWN INDICATION
     Route: 065
  3. CANNABIS [Suspect]
     Active Substance: CANNABIS SATIVA SUBSP. INDICA TOP
     Indication: DRUG ABUSE
     Dosage: 20 JOINTS/DAY
     Route: 055
     Dates: start: 1988
  4. METHADONE AP-HP [Suspect]
     Active Substance: METHADONE HYDROCHLORIDE
     Indication: PRODUCT USED FOR UNKNOWN INDICATION
     Route: 065

REACTIONS (4)
  - Hepatomegaly [Not Recovered/Not Resolved]
  - Drug abuse [Not Recovered/Not Resolved]
  - Drug dependence [Not Recovered/Not Resolved]
  - Dyspnoea [Not Recovered/Not Resolved]
